FAERS Safety Report 14127161 (Version 6)
Quarter: 2018Q2

REPORT INFORMATION
  Report Type: Spontaneous
  Country: ES (occurrence: ES)
  Receive Date: 20171026
  Receipt Date: 20180423
  Transmission Date: 20180711
  Serious: Yes (Hospitalization, Other)
  Sender: FDA-Public Use
  Company Number: ES-AMGEN-ESPSP2017160846

PATIENT
  Age: 46 Year
  Sex: Female

DRUGS (4)
  1. ZAMENE [Concomitant]
     Active Substance: DEFLAZACORT
     Indication: RHEUMATOID ARTHRITIS
     Dosage: 6 MG TABLETS, 20 TABLETS
     Route: 048
     Dates: start: 1995
  2. ENBREL [Suspect]
     Active Substance: ETANERCEPT
     Indication: RHEUMATOID ARTHRITIS
     Dosage: 50 MG, QWK
     Route: 058
     Dates: start: 20060309, end: 20130701
  3. PIROXICAM CINFA [Concomitant]
     Indication: RHEUMATOID ARTHRITIS
     Dosage: 20 MG, BID (EVERY 12 HOURS)
     Route: 048
     Dates: start: 200406, end: 200707
  4. METHOTREXATE. [Concomitant]
     Active Substance: METHOTREXATE
     Indication: RHEUMATOID ARTHRITIS
     Dosage: UNK
     Route: 065
     Dates: start: 1995, end: 20040115

REACTIONS (4)
  - Abdominal distension [Unknown]
  - Anal fistula [Unknown]
  - Diarrhoea [Recovering/Resolving]
  - Crohn^s disease [Not Recovered/Not Resolved]

NARRATIVE: CASE EVENT DATE: 2010
